FAERS Safety Report 7700139-9 (Version None)
Quarter: 2011Q3

REPORT INFORMATION
  Report Type: 
  Country: None (occurrence: None)
  Receive Date: 20110822
  Receipt Date: 20110512
  Transmission Date: 20111222
  Serious: No
  Sender: FDA-Public Use
  Company Number: US-PFIZER INC-2011097452

PATIENT
  Sex: Female
  Weight: 68.027 kg

DRUGS (7)
  1. AMBIEN [Concomitant]
     Indication: INSOMNIA
     Dosage: UNK
  2. PROZAC [Concomitant]
     Dosage: UNK
  3. ADVIL LIQUI-GELS [Suspect]
     Indication: PROCTALGIA
  4. ATIVAN [Concomitant]
     Dosage: UNK
  5. ADVIL LIQUI-GELS [Suspect]
     Indication: VULVOVAGINAL PAIN
     Dosage: 200 MG, 2X/DAY
     Route: 048
     Dates: start: 20110504
  6. SALAGEN [Concomitant]
     Dosage: UNK
  7. PERPHENAZINE [Concomitant]
     Dosage: UNK

REACTIONS (1)
  - DRUG INEFFECTIVE [None]
